FAERS Safety Report 24886886 (Version 1)
Quarter: 2025Q1

REPORT INFORMATION
  Report Type: Spontaneous
  Country: DE (occurrence: DE)
  Receive Date: 20250127
  Receipt Date: 20250127
  Transmission Date: 20250409
  Serious: Yes (Other)
  Sender: ALEXION PHARMACEUTICALS
  Company Number: DE-AstraZeneca-CH-00791887A

PATIENT

DRUGS (3)
  1. IMFINZI [Suspect]
     Active Substance: DURVALUMAB
  2. TRUQAP [Suspect]
     Active Substance: CAPIVASERTIB
     Route: 065
  3. PREDNISOLONE [Concomitant]
     Active Substance: PREDNISOLONE
     Route: 065

REACTIONS (5)
  - Metastasis [Unknown]
  - Pneumonitis [Unknown]
  - Lymphangiosarcoma [Unknown]
  - Disease progression [Unknown]
  - Splenomegaly [Unknown]
